FAERS Safety Report 8800498 (Version 2)
Quarter: 2015Q1

REPORT INFORMATION
  Report Type: Report from Study
  Country: US (occurrence: US)
  Receive Date: 20120921
  Receipt Date: 20150130
  Transmission Date: 20150721
  Serious: Yes (Death)
  Sender: FDA-Public Use
  Company Number: US-ROCHE-1104220

PATIENT
  Age: 67 Year
  Sex: Female

DRUGS (6)
  1. HERCEPTIN [Suspect]
     Active Substance: TRASTUZUMAB
     Indication: PANCREATIC CARCINOMA
     Route: 042
  2. LAPATINIB [Concomitant]
     Active Substance: LAPATINIB
     Route: 048
  3. MEPERIDINE [Concomitant]
     Active Substance: MEPERIDINE
     Route: 042
  4. AVASTIN [Suspect]
     Active Substance: BEVACIZUMAB
     Indication: PANCREATIC CARCINOMA
     Route: 042
  5. AVASTIN [Suspect]
     Active Substance: BEVACIZUMAB
     Indication: HEPATIC CANCER
  6. HERCEPTIN [Suspect]
     Active Substance: TRASTUZUMAB
     Indication: HEPATIC CANCER
     Route: 042

REACTIONS (2)
  - Death [Fatal]
  - Off label use [Unknown]

NARRATIVE: CASE EVENT DATE: 20110226
